FAERS Safety Report 9120755 (Version 2)
Quarter: 2013Q2

REPORT INFORMATION
  Report Type: Report from Study
  Country: US (occurrence: US)
  Receive Date: 20130226
  Receipt Date: 20130403
  Transmission Date: 20140414
  Serious: Yes (Hospitalization, Other)
  Sender: FDA-Public Use
  Company Number: US-ALEXION-A201300274

PATIENT
  Age: 76 Year
  Sex: Male
  Weight: 58 kg

DRUGS (7)
  1. SOLIRIS [Suspect]
     Indication: PAROXYSMAL NOCTURNAL HAEMOGLOBINURIA
     Dosage: 600 MG, QW
     Route: 042
     Dates: start: 20130301
  2. SOLIRIS [Suspect]
     Dosage: 900 MG, Q2W
     Route: 042
  3. ASPIRIN [Concomitant]
  4. GABAPENTIN [Concomitant]
  5. LANSOPRAZOLE [Concomitant]
  6. VICODIN [Concomitant]
  7. PREDNISONE [Concomitant]

REACTIONS (9)
  - Cerebrovascular accident [Recovered/Resolved]
  - Joint injury [Unknown]
  - Fall [Unknown]
  - Renal failure [Not Recovered/Not Resolved]
  - Dyspnoea [Unknown]
  - Syncope [Unknown]
  - Chest pain [Unknown]
  - Muscular weakness [Not Recovered/Not Resolved]
  - Weight decreased [Recovering/Resolving]
